FAERS Safety Report 5506147-0 (Version None)
Quarter: 2007Q4

REPORT INFORMATION
  Report Type: 
  Country: None (occurrence: None)
  Receive Date: 20071101
  Receipt Date: 20071018
  Transmission Date: 20080405
  Serious: Yes (Hospitalization, Other)
  Sender: FDA-Public Use
  Company Number: 1-15386507

PATIENT
  Age: 53 Year
  Sex: Female
  Weight: 90.7194 kg

DRUGS (11)
  1. FENTANYL TRANSDERMAL SYSTEM [Suspect]
     Indication: FIBROMYALGIA
     Dosage: ONE PATCH EVERY 72 HR, TRANSDERMAL
     Route: 062
     Dates: start: 20070927, end: 20071006
  2. FENTANYL TRANSDERMAL SYSTEM [Suspect]
     Indication: NEURALGIA
     Dosage: ONE PATCH EVERY 72 HR, TRANSDERMAL
     Route: 062
     Dates: start: 20070927, end: 20071006
  3. FENTANYL TRANSDERMAL SYSTEM [Suspect]
     Indication: FIBROMYALGIA
     Dosage: ONE PATCH EVERY 72 HR, TRANSDERMAL
     Route: 062
     Dates: start: 20070201
  4. FENTANYL TRANSDERMAL SYSTEM [Suspect]
     Indication: NEURALGIA
     Dosage: ONE PATCH EVERY 72 HR, TRANSDERMAL
     Route: 062
     Dates: start: 20070201
  5. DARVON [Concomitant]
  6. NAPROXEN SODIUM [Concomitant]
  7. PROZAC [Concomitant]
  8. CLONAZEPAM [Concomitant]
  9. AMOXICILLIN [Concomitant]
  10. THYROID TAB [Concomitant]
  11. NEURONTIN [Concomitant]

REACTIONS (5)
  - APHASIA [None]
  - BREAKTHROUGH PAIN [None]
  - DRUG INEFFECTIVE [None]
  - THERAPEUTIC RESPONSE UNEXPECTED WITH DRUG SUBSTITUTION [None]
  - UNRESPONSIVE TO STIMULI [None]
